FAERS Safety Report 16235107 (Version 2)
Quarter: 2019Q2

REPORT INFORMATION
  Report Type: Spontaneous
  Country: ES (occurrence: ES)
  Receive Date: 20190424
  Receipt Date: 20190513
  Transmission Date: 20190711
  Serious: Yes (Other)
  Sender: FDA-Public Use
  Company Number: ES-BAUSCH-BL-2019-011983

PATIENT
  Age: 71 Year
  Sex: Female

DRUGS (2)
  1. BRIMONIDINE [Suspect]
     Active Substance: BRIMONIDINE TARTRATE
     Indication: PRODUCT USED FOR UNKNOWN INDICATION
     Route: 061
     Dates: start: 2015
  2. TIMOLOL. [Concomitant]
     Active Substance: TIMOLOL
     Indication: OCULAR HYPERTENSION
     Route: 061
     Dates: start: 2012

REACTIONS (1)
  - Lichen planus [Recovering/Resolving]
